FAERS Safety Report 8431950-7 (Version None)
Quarter: 2012Q2

REPORT INFORMATION
  Report Type: 
  Country: None (occurrence: None)
  Receive Date: 20120606
  Receipt Date: 20120522
  Transmission Date: 20120825
  Serious: Yes (Other)
  Sender: FDA-Public Use
  Company Number: 2012-00818

PATIENT
  Age: 90 Year
  Sex: Female

DRUGS (1)
  1. SUPRAX [Suspect]
     Indication: PRODUCT USED FOR UNKNOWN INDICATION
     Dosage: (400MG,  ), PER ORAL
     Route: 048

REACTIONS (1)
  - PSYCHOTIC DISORDER [None]
